FAERS Safety Report 8849048 (Version 3)
Quarter: 2013Q1

REPORT INFORMATION
  Report Type: Report from Study
  Country: FR (occurrence: FR)
  Receive Date: 20121019
  Receipt Date: 20130130
  Transmission Date: 20140127
  Serious: Yes (Hospitalization)
  Sender: FDA-Public Use
  Company Number: PHHY2012FR093196

PATIENT
  Sex: Male
  Weight: 21 kg

DRUGS (4)
  1. ICL670A [Suspect]
     Indication: THALASSAEMIA BETA
     Dosage: 625 MG, DAILY
     Route: 048
     Dates: start: 20071231
  2. ICL670A [Suspect]
     Dosage: UNK UKN, UNK (REGULARLY ADJUSTED)
  3. ICL670A [Suspect]
     Dosage: 625 MG, DAILY
     Route: 048
     Dates: start: 201105, end: 20120118
  4. ICL670A [Suspect]
     Dosage: UNK UKN, UNK
     Dates: start: 20120309

REACTIONS (9)
  - Renal tubular disorder [Recovered/Resolved]
  - Polyuria [Recovered/Resolved]
  - Polydipsia [Recovered/Resolved]
  - Hypokalaemia [Unknown]
  - Blood phosphorus decreased [Unknown]
  - Alanine aminotransferase decreased [Unknown]
  - Blood pressure diastolic decreased [Unknown]
  - Blood creatinine decreased [Unknown]
  - Blood creatinine increased [Unknown]
